FAERS Safety Report 4909246-7 (Version None)
Quarter: 2006Q1

REPORT INFORMATION
  Report Type: 
  Country: None (occurrence: None)
  Receive Date: 20060209
  Receipt Date: 20060209
  Transmission Date: 20060701
  Serious: Yes (Other)
  Sender: FDA-Public Use
  Company Number: None

PATIENT
  Age: 33 Year
  Sex: Female
  Weight: 43.5453 kg

DRUGS (2)
  1. PERCOCET GENERIC (ALL STRENGTHS) [Suspect]
     Indication: MULTIPLE SCLEROSIS
     Dosage: ALL STRENGTHS
  2. OXYCODONE AND ACETAMINOPHEN [Suspect]

REACTIONS (1)
  - PRURITUS [None]
